FAERS Safety Report 7008580-7 (Version None)
Quarter: 2010Q3

REPORT INFORMATION
  Report Type: 
  Country: None (occurrence: None)
  Receive Date: 20100922
  Receipt Date: 20100908
  Transmission Date: 20110219
  Serious: Yes (Hospitalization)
  Sender: FDA-Public Use
  Company Number: TR-WATSON-2010-12564

PATIENT
  Age: 33 Year
  Sex: Female

DRUGS (1)
  1. FLUOXETINE [Suspect]
     Indication: DEPRESSION
     Dosage: 20 MG, DAILY

REACTIONS (5)
  - HUMERUS FRACTURE [None]
  - PATHOLOGICAL FRACTURE [None]
  - RADIUS FRACTURE [None]
  - SPINAL FRACTURE [None]
  - ULNA FRACTURE [None]
